FAERS Safety Report 5449332-9 (Version None)
Quarter: 2007Q3

REPORT INFORMATION
  Report Type: 
  Country: None (occurrence: None)
  Receive Date: 20070911
  Receipt Date: 20070831
  Transmission Date: 20080115
  Serious: Yes (Other)
  Sender: FDA-Public Use
  Company Number: US-PFIZER INC-2007058904

PATIENT
  Sex: Male
  Weight: 122.5 kg

DRUGS (5)
  1. CHANTIX [Suspect]
     Indication: SMOKING CESSATION THERAPY
  2. CHANTIX [Suspect]
     Indication: ILL-DEFINED DISORDER
  3. ETANERCEPT [Concomitant]
  4. PREDNISONE TAB [Concomitant]
  5. LORTAB [Concomitant]

REACTIONS (6)
  - GOUT [None]
  - MUSCLE SPASMS [None]
  - MUSCLE TIGHTNESS [None]
  - MUSCULAR WEAKNESS [None]
  - MYALGIA [None]
  - NEPHROLITHIASIS [None]
